FAERS Safety Report 8338899-9 (Version None)
Quarter: 2012Q2

REPORT INFORMATION
  Report Type: 
  Country: None (occurrence: None)
  Receive Date: 20120506
  Receipt Date: 20120424
  Transmission Date: 20120825
  Serious: Yes (Hospitalization)
  Sender: FDA-Public Use
  Company Number: NL-MEDIMMUNE-MEDI-0015054

PATIENT
  Sex: Male
  Weight: 7.1 kg

DRUGS (7)
  1. DOMPERIDONE [Concomitant]
  2. SYNAGIS [Suspect]
     Route: 030
     Dates: start: 20120221
  3. SYNAGIS [Suspect]
     Indication: BRONCHOPULMONARY DYSPLASIA
     Route: 030
     Dates: start: 20111028, end: 20120119
  4. TRIMETHOPRIM SULFOMETHOXAZOL [Concomitant]
  5. ESOMEPRAZOLE [Concomitant]
  6. LEVOTHYROXINE SODIUM [Concomitant]
  7. HYDROCORTISONE [Concomitant]

REACTIONS (8)
  - DIARRHOEA [None]
  - RESPIRATORY FAILURE [None]
  - VIRAL INFECTION [None]
  - COUGH [None]
  - DYSPNOEA [None]
  - VOMITING [None]
  - PYREXIA [None]
  - POLYOMAVIRUS TEST POSITIVE [None]
